FAERS Safety Report 22025383 (Version 1)
Quarter: 2023Q1

REPORT INFORMATION
  Report Type: Spontaneous
  Country: US (occurrence: None)
  Receive Date: 20230223
  Receipt Date: 20230223
  Transmission Date: 20230418
  Serious: No
  Sender: FDA-Public Use
  Company Number: US-ROCHE-3096907

PATIENT
  Age: 49 Year
  Sex: Male
  Weight: 115.77 kg

DRUGS (21)
  1. XOLAIR [Suspect]
     Active Substance: OMALIZUMAB
     Indication: Polyarthritis
     Dosage: STRENGTH 150 MG/ML
     Route: 058
     Dates: start: 201810
  2. XOLAIR [Suspect]
     Active Substance: OMALIZUMAB
  3. XOLAIR [Suspect]
     Active Substance: OMALIZUMAB
  4. XOLAIR [Suspect]
     Active Substance: OMALIZUMAB
     Indication: Rheumatoid arthritis
     Dosage: 1 INJECTION IN EACH ARM
     Route: 065
     Dates: start: 2015
  5. XOLAIR [Suspect]
     Active Substance: OMALIZUMAB
  6. XOLAIR [Suspect]
     Active Substance: OMALIZUMAB
  7. XOLAIR [Suspect]
     Active Substance: OMALIZUMAB
     Indication: Idiopathic urticaria
  8. XOLAIR [Suspect]
     Active Substance: OMALIZUMAB
  9. XOLAIR [Suspect]
     Active Substance: OMALIZUMAB
  10. XOLAIR [Suspect]
     Active Substance: OMALIZUMAB
     Indication: Nephritic syndrome
  11. XOLAIR [Suspect]
     Active Substance: OMALIZUMAB
  12. XOLAIR [Suspect]
     Active Substance: OMALIZUMAB
  13. XOLAIR [Suspect]
     Active Substance: OMALIZUMAB
     Indication: Angioedema
  14. XOLAIR [Suspect]
     Active Substance: OMALIZUMAB
  15. XOLAIR [Suspect]
     Active Substance: OMALIZUMAB
  16. XOLAIR [Suspect]
     Active Substance: OMALIZUMAB
     Indication: Urticaria
  17. XOLAIR [Suspect]
     Active Substance: OMALIZUMAB
  18. XOLAIR [Suspect]
     Active Substance: OMALIZUMAB
  19. CYCLOSPORINE [Concomitant]
     Active Substance: CYCLOSPORINE
  20. ATORVASTATIN [Concomitant]
     Active Substance: ATORVASTATIN
  21. LIPITOR [Concomitant]
     Active Substance: ATORVASTATIN CALCIUM
     Dosage: LATER ON REDUCED THE DOSE TO 40 MG
     Route: 048

REACTIONS (3)
  - Myalgia [Recovered/Resolved]
  - Unevaluable event [Not Recovered/Not Resolved]
  - Pain [Recovered/Resolved]

NARRATIVE: CASE EVENT DATE: 20220311
